FAERS Safety Report 7261790-6 (Version None)
Quarter: 2011Q1

REPORT INFORMATION
  Report Type: 
  Country: None (occurrence: None)
  Receive Date: 20110130
  Receipt Date: 20101130
  Transmission Date: 20110831
  Serious: No
  Sender: FDA-Public Use
  Company Number: US-ABBOTT-10P-163-0688499-00

PATIENT
  Age: 71 Year
  Sex: Female

DRUGS (3)
  1. VAGIFEM [Concomitant]
     Indication: VULVOVAGINAL DRYNESS
  2. LEVOTHYROXINE SODIUM [Concomitant]
     Indication: HYPOTHYROIDISM
  3. HUMIRA [Suspect]
     Indication: RHEUMATOID ARTHRITIS
     Dates: start: 20060101

REACTIONS (3)
  - RASH PRURITIC [None]
  - SKIN BURNING SENSATION [None]
  - RASH MACULAR [None]
